FAERS Safety Report 15868429 (Version 1)
Quarter: 2019Q1

REPORT INFORMATION
  Report Type: Report from Study
  Country: US (occurrence: US)
  Receive Date: 20190125
  Receipt Date: 20190125
  Transmission Date: 20190417
  Serious: Yes (Death)
  Sender: FDA-Public Use
  Company Number: US-PFIZER INC-2019035635

PATIENT

DRUGS (5)
  1. CYCLOPHOSPHAMIDE. [Suspect]
     Active Substance: CYCLOPHOSPHAMIDE
     Indication: PLASMA CELL MYELOMA
     Dosage: 350 MG/M2, 2X/DAY (28 DAY CYCLE)
     Route: 042
  2. BORTEZOMIB. [Suspect]
     Active Substance: BORTEZOMIB
     Indication: PLASMA CELL MYELOMA RECURRENT
     Dosage: 1.3 MG/M2, CYCLIC (DAYS 1, 4, 8,11) 28 DAY CYCLE
     Route: 058
  3. DEXAMETHASONE. [Suspect]
     Active Substance: DEXAMETHASONE
     Indication: PLASMA CELL MYELOMA RECURRENT
     Dosage: 40 MG, DAILY (DAYS 1-4, 9-12, 17-20) 28 DAY CYCLE
     Route: 048
  4. MESNA. [Suspect]
     Active Substance: MESNA
     Indication: PLASMA CELL MYELOMA RECURRENT
     Dosage: 400 MG/M2, DAILY (IV DAILY (DAYS 1-4) 28 DAY CYCLE)
     Route: 042
  5. DOXORUBICIN HCL [Suspect]
     Active Substance: DOXORUBICIN HYDROCHLORIDE
     Indication: PLASMA CELL MYELOMA RECURRENT
     Dosage: 9 MG/M2, CYCLIC (28 DAY CYCLE (DAYS1-4))
     Route: 042

REACTIONS (1)
  - Death [Fatal]
